FAERS Safety Report 5763278-8 (Version None)
Quarter: 2008Q2

REPORT INFORMATION
  Report Type: 
  Country: None (occurrence: None)
  Receive Date: 20080604
  Receipt Date: 20080604
  Transmission Date: 20081010
  Serious: Yes (Other)
  Sender: FDA-Public Use
  Company Number: None

PATIENT
  Age: 17 Year
  Sex: Male
  Weight: 49.8957 kg

DRUGS (1)
  1. BENZONATATE 100MG MALLINCKR [Suspect]
     Indication: COUGH
     Dosage: 1 CAPSULE EVERY 4-6 HRS PO 1 DOSE
     Route: 048
     Dates: start: 20080602, end: 20080602

REACTIONS (3)
  - ABNORMAL BEHAVIOUR [None]
  - AGITATION [None]
  - HOMICIDAL IDEATION [None]
